FAERS Safety Report 10255004 (Version 2)
Quarter: 2014Q2

REPORT INFORMATION
  Report Type: Spontaneous
  Country: CH (occurrence: CH)
  Receive Date: 20140624
  Receipt Date: 20140624
  Transmission Date: 20141212
  Serious: Yes (Other)
  Sender: FDA-Public Use
  Company Number: CH-BAXTER-2014BAX026010

PATIENT
  Age: 34 Year
  Sex: Male
  Weight: 78 kg

DRUGS (12)
  1. EXTRANEAL [Suspect]
     Indication: ULTRAFILTRATION FAILURE
     Route: 033
     Dates: start: 20140401, end: 20140429
  2. AMLODIPINE [Concomitant]
     Indication: BLOOD PRESSURE
     Route: 065
  3. NEBILET [Concomitant]
     Indication: BLOOD PRESSURE
     Route: 065
  4. TRIATEC [Concomitant]
     Indication: BLOOD PRESSURE
     Route: 065
  5. ROCALTROL [Concomitant]
     Indication: BONE DISORDER
     Route: 065
  6. PANTOZOL [Concomitant]
     Indication: GASTRIC DISORDER
     Route: 065
  7. RESONIUM [Concomitant]
     Indication: PRODUCT USED FOR UNKNOWN INDICATION
     Route: 065
  8. CALCIUM CARBONATE [Concomitant]
     Indication: PRODUCT USED FOR UNKNOWN INDICATION
     Route: 065
  9. TRANSIPEG FORTE [Concomitant]
     Indication: CONSTIPATION
     Route: 065
  10. IBUPROFEN [Concomitant]
     Indication: PAIN
  11. DAFALGAN [Concomitant]
     Indication: PAIN
  12. NOVALGIN [Concomitant]
     Indication: PAIN

REACTIONS (4)
  - Drug intolerance [Recovered/Resolved]
  - Hyperaesthesia [Recovered/Resolved]
  - Paraesthesia [Recovered/Resolved]
  - Gait disturbance [Recovered/Resolved]
